FAERS Safety Report 4354262-X (Version None)
Quarter: 2004Q2

REPORT INFORMATION
  Report Type: 
  Country: None (occurrence: None)
  Receive Date: 20040503
  Receipt Date: 20040217
  Transmission Date: 20050107
  Serious: No
  Sender: FDA-Public Use
  Company Number: 805#1#2004-00003

PATIENT
  Age: 75 Year
  Sex: Male

DRUGS (5)
  1. ALPROSTADIL [Suspect]
     Indication: ATHEROSCLEROSIS OBLITERANS
     Dosage: 1.120 MCG (60MCG 2 IN 1 DAY(S))
     Route: 041
     Dates: start: 20040121, end: 20040127
  2. SODIUM BICARBONATE IN PLASTIC CONTAINER [Concomitant]
  3. NIFEDIPINE [Concomitant]
  4. ENALAPRIL MALEATE [Concomitant]
  5. SODIUM BICARBONATE IN PLASTIC CONTAINER [Concomitant]

REACTIONS (22)
  - ALANINE AMINOTRANSFERASE INCREASED [None]
  - AORTIC STENOSIS [None]
  - AORTIC VALVE INCOMPETENCE [None]
  - ASCITES [None]
  - BLOOD GLUCOSE INCREASED [None]
  - BLOOD POTASSIUM DECREASED [None]
  - BLOOD PRESSURE DIASTOLIC DECREASED [None]
  - BODY TEMPERATURE INCREASED [None]
  - C-REACTIVE PROTEIN INCREASED [None]
  - CARDIOMEGALY [None]
  - HAEMATOCRIT INCREASED [None]
  - HAEMATURIA [None]
  - HAEMOGLOBIN INCREASED [None]
  - PLATELET COUNT DECREASED [None]
  - PLEURAL EFFUSION [None]
  - PROTEIN TOTAL DECREASED [None]
  - PROTEIN URINE PRESENT [None]
  - RED BLOOD CELL COUNT DECREASED [None]
  - RENAL FAILURE ACUTE [None]
  - VENTRICULAR HYPERTROPHY [None]
  - WHITE BLOOD CELL COUNT INCREASED [None]
  - WHITE BLOOD CELLS URINE POSITIVE [None]
